FAERS Safety Report 23313136 (Version 3)
Quarter: 2024Q1

REPORT INFORMATION
  Report Type: Spontaneous
  Country: US (occurrence: US)
  Receive Date: 20231219
  Receipt Date: 20240130
  Transmission Date: 20240410
  Serious: Yes (Other)
  Sender: FDA-Public Use
  Company Number: US-PFIZER INC-PV202300203045

PATIENT
  Age: 79 Year
  Sex: Female
  Weight: 95.25 kg

DRUGS (5)
  1. VYNDAMAX [Suspect]
     Active Substance: TAFAMIDIS
     Indication: Amyloidosis
     Dosage: 61 MG, 1X/DAY
     Route: 048
     Dates: start: 2023
  2. ATORVASTATIN [Concomitant]
     Active Substance: ATORVASTATIN
     Dosage: 80MG ONE A DAY BY MOUTH
     Route: 048
  3. DILTIAZEM HYDROCHLORIDE [Concomitant]
     Active Substance: DILTIAZEM HYDROCHLORIDE
     Dosage: 120MG ONCE A DAY BY MOUTH
     Route: 048
  4. METOPROLOL SUCCINATE [Concomitant]
     Active Substance: METOPROLOL SUCCINATE
     Dosage: 25MG TABLET ONCE A DAY BY MOUTH
     Route: 048
  5. FUROSEMIDE [Concomitant]
     Active Substance: FUROSEMIDE
     Dosage: 40MG TABLET THREE TIMES A WEEK BY MOUTH
     Route: 048

REACTIONS (3)
  - Deafness [Not Recovered/Not Resolved]
  - Ear infection fungal [Recovered/Resolved]
  - Tympanic membrane perforation [Not Recovered/Not Resolved]
